FAERS Safety Report 13839874 (Version 4)
Quarter: 2017Q3

REPORT INFORMATION
  Report Type: Spontaneous
  Country: US (occurrence: US)
  Receive Date: 20170807
  Receipt Date: 20170818
  Transmission Date: 20171127
  Serious: Yes (Other)
  Sender: FDA-Public Use
  Company Number: US-GLAXOSMITHKLINE-US2017121503

PATIENT
  Age: 60 Year
  Sex: Female

DRUGS (4)
  1. EPINEPHRIN [Concomitant]
  2. SINGULAIR [Concomitant]
     Active Substance: MONTELUKAST SODIUM
  3. ADVAIR DISKUS [Suspect]
     Active Substance: FLUTICASONE PROPIONATE\SALMETEROL XINAFOATE
     Indication: ASTHMA
     Dosage: 1 PUFF(S), BID
     Route: 055
  4. NASACORT NASAL SPRAY [Concomitant]

REACTIONS (9)
  - Fatigue [Unknown]
  - Food allergy [Not Recovered/Not Resolved]
  - Seasonal allergy [Unknown]
  - Malaise [Not Recovered/Not Resolved]
  - Hypersensitivity [Unknown]
  - Drug dose omission [Unknown]
  - Anaphylactic reaction [Unknown]
  - Wrong technique in device usage process [Unknown]
  - Delirium [Unknown]

NARRATIVE: CASE EVENT DATE: 20170803
